FAERS Safety Report 8074295-X (Version None)
Quarter: 2012Q1

REPORT INFORMATION
  Report Type: 
  Country: None (occurrence: None)
  Receive Date: 20120126
  Receipt Date: 20120118
  Transmission Date: 20120608
  Serious: Yes (Disabling, Other)
  Sender: FDA-Public Use
  Company Number: US-B.I. PHARMACEUTICALS,INC./RIDGEFIELD-2011-BP-25075BP

PATIENT
  Sex: Female
  Weight: 58.06 kg

DRUGS (11)
  1. XANAX [Suspect]
     Indication: ANXIETY
     Route: 048
     Dates: start: 20100608
  2. CELEXA [Suspect]
  3. NORVASC [Suspect]
     Indication: HYPERTENSION
     Route: 048
     Dates: start: 20100101
  4. BENICAR [Suspect]
     Indication: HYPERTENSION
     Dosage: 40 MG
     Dates: start: 20100101
  5. CATAPRES-TTS-1 [Suspect]
     Indication: HYPERTENSION
     Dates: start: 20100101
  6. ZANTAC [Suspect]
     Indication: BURN OESOPHAGEAL
     Dosage: 600 MG
  7. PLAVIX [Suspect]
     Indication: ANTICOAGULANT THERAPY
  8. ASPIRIN [Concomitant]
     Indication: CARDIAC DISORDER
     Dosage: 81 MG
  9. ZANTAC [Suspect]
     Indication: GASTROOESOPHAGEAL REFLUX DISEASE
  10. METOPROLOL TARTRATE [Suspect]
     Indication: HYPERTENSION
     Dosage: 40 MG
     Dates: start: 20100101
  11. LISINOPRIL [Suspect]
     Indication: HYPERTENSION

REACTIONS (17)
  - FUNCTIONAL GASTROINTESTINAL DISORDER [None]
  - MEDICATION ERROR [None]
  - DECREASED APPETITE [None]
  - WEIGHT DECREASED [None]
  - DRUG HYPERSENSITIVITY [None]
  - DEPENDENCE [None]
  - TONGUE DRY [None]
  - ACTIVITIES OF DAILY LIVING IMPAIRED [None]
  - BURN OESOPHAGEAL [None]
  - HYPERTENSION [None]
  - ANAL SPHINCTER HYPERTONIA [None]
  - INCORRECT DOSE ADMINISTERED [None]
  - INCORRECT DRUG DOSAGE FORM ADMINISTERED [None]
  - ANXIETY [None]
  - CHEST DISCOMFORT [None]
  - DRY MOUTH [None]
  - HAIR TEXTURE ABNORMAL [None]
